FAERS Safety Report 9743661 (Version 1)
Quarter: 2013Q4

REPORT INFORMATION
  Report Type: Spontaneous
  Country: US (occurrence: US)
  Receive Date: 20131210
  Receipt Date: 20131210
  Transmission Date: 20140711
  Serious: No
  Sender: FDA-Public Use
  Company Number: US-TEVA-381909USA

PATIENT
  Age: 32 Year
  Sex: Female

DRUGS (2)
  1. PARAGARD 380A [Suspect]
     Indication: CONTRACEPTION
     Route: 015
     Dates: start: 2012
  2. DOXYCLYINE [Concomitant]
     Indication: ACNE

REACTIONS (2)
  - Menstruation delayed [Not Recovered/Not Resolved]
  - Pelvic pain [Not Recovered/Not Resolved]
